FAERS Safety Report 6551400-5 (Version None)
Quarter: 2010Q1

REPORT INFORMATION
  Report Type: 
  Country: None (occurrence: None)
  Receive Date: 20100120
  Receipt Date: 20100104
  Transmission Date: 20100710
  Serious: Yes (Hospitalization, Other)
  Sender: FDA-Public Use
  Company Number: KD-S-20100001

PATIENT
  Sex: Male
  Weight: 70 kg

DRUGS (1)
  1. ESTRODOSE (GYNOKADIN) [Suspect]
     Dosage: TOPICAL
     Route: 061
     Dates: start: 20090417, end: 20090428

REACTIONS (1)
  - HEPATITIS ACUTE [None]
